FAERS Safety Report 7708693-8 (Version None)
Quarter: 2011Q3

REPORT INFORMATION
  Report Type: 
  Country: None (occurrence: None)
  Receive Date: 20110824
  Receipt Date: 20110824
  Transmission Date: 20111222
  Serious: Yes (Hospitalization)
  Sender: FDA-Public Use
  Company Number: None

PATIENT
  Age: 63 Year
  Sex: Female
  Weight: 57.6 kg

DRUGS (10)
  1. ABRAXANE [Suspect]
     Indication: HEAD AND NECK CANCER
     Dosage: 50MG/M2 WEEKLY IV 2GY PER FX
     Dates: start: 20110809, end: 20110815
  2. CARBOPLATIN [Suspect]
     Indication: HEAD AND NECK CANCER
     Dosage: AUC 1.5 WEEKLY; IV
     Route: 042
     Dates: start: 20110809, end: 20110815
  3. CALCIUM CARBONATE [Concomitant]
  4. METOCLOPRAMIDE HYDROCHLORIDE [Concomitant]
  5. SENNA-MINT WAF [Concomitant]
  6. ROXICET ORAL SOLUTION [Concomitant]
  7. METHIMAZOLE [Concomitant]
  8. VITAMIN D [Concomitant]
  9. LORAZEPAM [Concomitant]
  10. MULTI-VITAMINS [Concomitant]

REACTIONS (4)
  - CHILLS [None]
  - PNEUMONIA ASPIRATION [None]
  - NAUSEA [None]
  - PULMONARY EMBOLISM [None]
